FAERS Safety Report 19779238 (Version 1)
Quarter: 2021Q3

REPORT INFORMATION
  Report Type: Spontaneous
  Country: US (occurrence: US)
  Receive Date: 20210902
  Receipt Date: 20210902
  Transmission Date: 20211014
  Serious: No
  Sender: FDA-Public Use
  Company Number: US-GLAXOSMITHKLINE-US2021183431

PATIENT
  Sex: Female

DRUGS (4)
  1. TRELEGY ELLIPTA [Suspect]
     Active Substance: FLUTICASONE FUROATE\UMECLIDINIUM BROMIDE\VILANTEROL TRIFENATATE
     Indication: ASTHMA
     Dosage: 1 PUFF(S), QD, 100/62.5/25 MCG
     Route: 055
  2. ADVAIR HFA [Suspect]
     Active Substance: FLUTICASONE PROPIONATE\SALMETEROL XINAFOATE
     Indication: ASTHMA
     Dosage: UNK, 500/50
  3. NUCALA [Suspect]
     Active Substance: MEPOLIZUMAB
     Indication: ASTHMA
     Dosage: 100 MG/ML, Z (ONCE A MONTH)
     Route: 058
     Dates: start: 2020
  4. NUCALA [Suspect]
     Active Substance: MEPOLIZUMAB
     Indication: ASTHMA
     Dosage: UNK, Z (ONCE A MONTH)
     Dates: start: 2018

REACTIONS (8)
  - Wrong technique in device usage process [Unknown]
  - Alopecia [Unknown]
  - Inappropriate schedule of product administration [Unknown]
  - Rash pruritic [Unknown]
  - Drug ineffective [Unknown]
  - Injection site pain [Unknown]
  - Exposure via skin contact [Unknown]
  - Accidental exposure to product [Unknown]

NARRATIVE: CASE EVENT DATE: 2018
